FAERS Safety Report 13803743 (Version 1)
Quarter: 2017Q3

REPORT INFORMATION
  Report Type: Spontaneous
  Country: RO (occurrence: RO)
  Receive Date: 20170728
  Receipt Date: 20170728
  Transmission Date: 20171127
  Serious: Yes (Hospitalization, Disabling)
  Sender: FDA-Public Use
  Company Number: RO-009507513-1707ROM007125

PATIENT
  Age: 50 Year
  Sex: Female

DRUGS (2)
  1. BCG LIVE [Suspect]
     Active Substance: BACILLUS CALMETTE-GUERIN SUBSTRAIN TICE LIVE ANTIGEN
     Indication: BLADDER CANCER
     Dosage: ONE ADMINISTRATION PER WEEK
     Route: 043
     Dates: start: 2014, end: 2014
  2. BCG LIVE [Suspect]
     Active Substance: BACILLUS CALMETTE-GUERIN SUBSTRAIN TICE LIVE ANTIGEN
     Dosage: ONE ADMINISTRATION PER WEEK
     Route: 043
     Dates: start: 201403, end: 2014

REACTIONS (1)
  - Arthritis reactive [Recovering/Resolving]

NARRATIVE: CASE EVENT DATE: 2014
